FAERS Safety Report 20951062 (Version 2)
Quarter: 2023Q1

REPORT INFORMATION
  Report Type: Spontaneous
  Country: GB (occurrence: GB)
  Receive Date: 20220613
  Receipt Date: 20230331
  Transmission Date: 20230418
  Serious: Yes (Disabling)
  Sender: FDA-Public Use
  Company Number: None

PATIENT
  Age: 62 Year
  Sex: Female
  Weight: 62 kg

DRUGS (4)
  1. ALENDRONATE SODIUM [Suspect]
     Active Substance: ALENDRONATE SODIUM
     Indication: Ill-defined disorder
     Dosage: UNK
     Dates: start: 20220531
  2. ALENDRONATE SODIUM [Suspect]
     Active Substance: ALENDRONATE SODIUM
     Indication: Ill-defined disorder
     Dosage: 70 MILLIGRAM, QW
     Dates: start: 20210524, end: 20220531
  3. CODEINE PHOSPHATE [Concomitant]
     Active Substance: CODEINE PHOSPHATE
     Indication: Ill-defined disorder
     Dosage: TAKE ONE 4 TIMES/DAY IF NEEDED
     Dates: start: 20220408, end: 20220415
  4. THEICAL D3 [Concomitant]
     Indication: Ill-defined disorder
     Dosage: TAKEN SEPARATELY FROM OTHER TABLETS
     Dates: start: 20210524

REACTIONS (2)
  - Depression [Recovered/Resolved]
  - Fatigue [Recovered/Resolved]

NARRATIVE: CASE EVENT DATE: 20220531
